FAERS Safety Report 10192199 (Version 2)
Quarter: 2014Q2

REPORT INFORMATION
  Report Type: Spontaneous
  Country: JP (occurrence: JP)
  Receive Date: 20140523
  Receipt Date: 20140528
  Transmission Date: 20141212
  Serious: Yes (Hospitalization)
  Sender: FDA-Public Use
  Company Number: JP-ASTRAZENECA-2014SE34335

PATIENT
  Age: 64 Year
  Sex: Male
  Weight: 78 kg

DRUGS (9)
  1. XYLOCAINE [Suspect]
     Route: 065
  2. PROPOFOL (NON AZ PRODUCT) [Suspect]
     Indication: INDUCTION OF ANAESTHESIA
     Route: 042
  3. NICORANDIL [Concomitant]
     Dosage: 4 MG/MIN
  4. REMIFENTANIL HYDROCHLORIDE [Concomitant]
     Indication: INDUCTION AND MAINTENANCE OF ANAESTHESIA
     Dosage: 0.25 MCG/KG/MIN
     Route: 042
  5. ROCURONIUM BROMIDE [Concomitant]
     Indication: MAINTENANCE OF ANAESTHESIA
     Route: 042
  6. SEVOFLURANE [Concomitant]
     Indication: MAINTENANCE OF ANAESTHESIA
     Dosage: 1.2 - 1.5%
  7. FENTANYL [Concomitant]
  8. CARVEDILOL [Concomitant]
     Indication: CARDIAC FAILURE
  9. VALSARTAN [Concomitant]
     Indication: CARDIAC FAILURE

REACTIONS (1)
  - Hypoxia [Recovered/Resolved]
